FAERS Safety Report 21698401 (Version 5)
Quarter: 2023Q2

REPORT INFORMATION
  Report Type: Report from Study
  Country: JP (occurrence: None)
  Receive Date: 20221208
  Receipt Date: 20230530
  Transmission Date: 20230722
  Serious: Yes (Hospitalization)
  Sender: FDA-Public Use
  Company Number: JP-ROCHE-3232923

PATIENT
  Age: 80 Year
  Sex: Male
  Weight: 70.8 kg

DRUGS (12)
  1. RITUXIMAB [Suspect]
     Active Substance: RITUXIMAB
     Indication: Chronic lymphocytic leukaemia
     Dosage: CYCLICAL, FIRST DOE OF RITUXIMAB 693 MG (ON DAYS ONE TWO OF EACH CYCLE), THIS WAS THE LAST DOSE OF R
     Route: 042
     Dates: start: 20221101
  2. BENDAMUSTINE [Suspect]
     Active Substance: BENDAMUSTINE
     Indication: Chronic lymphocytic leukaemia
     Dosage: CYCLICAL, FIRST DOE OF BENDAMUSTINE 166 MG (ON DAYS ONE TWO OF EACH CYCLE), LAST DOSE OF BENDAMUSTIN
     Route: 042
     Dates: start: 20221101
  3. LANSOPRAZOLE [Concomitant]
     Active Substance: LANSOPRAZOLE
     Route: 065
     Dates: start: 20221101
  4. MAGNESIUM OXIDE [Concomitant]
     Active Substance: MAGNESIUM OXIDE
     Route: 065
     Dates: start: 20221101
  5. FLURBIPROFEN [Concomitant]
     Active Substance: FLURBIPROFEN
     Route: 065
     Dates: start: 20221102
  6. ELOBIXIBAT [Concomitant]
     Active Substance: ELOBIXIBAT
     Route: 065
     Dates: start: 20221104
  7. FEBUXOSTAT [Concomitant]
     Active Substance: FEBUXOSTAT
     Route: 065
     Dates: start: 20221104
  8. CALCIUM POLYSTYRENE SULFONATE [Concomitant]
     Active Substance: CALCIUM POLYSTYRENE SULFONATE
     Dates: start: 20221109, end: 20221124
  9. ALPRAZOLAM [Concomitant]
     Active Substance: ALPRAZOLAM
     Route: 065
     Dates: start: 20221114
  10. RAMELTEON [Concomitant]
     Active Substance: RAMELTEON
     Route: 065
     Dates: start: 20221104
  11. DOMPERIDONE [Concomitant]
     Active Substance: DOMPERIDONE
     Route: 065
     Dates: start: 20221113
  12. SULFAMETHOXAZOLE [Concomitant]
     Active Substance: SULFAMETHOXAZOLE
     Route: 065
     Dates: start: 20221114

REACTIONS (1)
  - COVID-19 [Recovered/Resolved]

NARRATIVE: CASE EVENT DATE: 20221124
